FAERS Safety Report 5922481-4 (Version None)
Quarter: 2008Q4

REPORT INFORMATION
  Report Type: 
  Country: None (occurrence: None)
  Receive Date: 20081017
  Receipt Date: 20081011
  Transmission Date: 20090506
  Serious: Yes (Hospitalization)
  Sender: FDA-Public Use
  Company Number: JP-NOVOPROD-279805

PATIENT
  Age: 70 Year
  Sex: Male
  Weight: 78 kg

DRUGS (6)
  1. INNOLET R CHU [Suspect]
     Indication: TYPE 2 DIABETES MELLITUS
     Dosage: UNKNOWN
     Route: 058
     Dates: start: 20060624
  2. INNOLET N CHU [Suspect]
     Indication: TYPE 2 DIABETES MELLITUS
     Dosage: UNKNOWN
     Route: 058
     Dates: start: 20060624
  3. NORVASC [Concomitant]
     Dates: start: 20040101
  4. THEO-SLOW THEOPHYLLINE [Concomitant]
  5. BISOLVON                           /00004702/ [Concomitant]
  6. GASTER                             /00706001/ [Concomitant]

REACTIONS (1)
  - PLATELET COUNT DECREASED [None]
